FAERS Safety Report 21202605 (Version 1)
Quarter: 2022Q3

REPORT INFORMATION
  Report Type: Spontaneous
  Country: US (occurrence: US)
  Receive Date: 20220811
  Receipt Date: 20220811
  Transmission Date: 20221027
  Serious: Yes (Other)
  Sender: FDA-Public Use
  Company Number: US-EXELA PHARMA SCIENCES, LLC-2022EXL00022

PATIENT
  Sex: Male

DRUGS (1)
  1. SODIUM BICARBONATE [Suspect]
     Active Substance: SODIUM BICARBONATE

REACTIONS (5)
  - Blindness [Not Recovered/Not Resolved]
  - Eyelid abrasion [Not Recovered/Not Resolved]
  - Eye injury [Not Recovered/Not Resolved]
  - Intraocular pressure increased [Unknown]
  - Product package associated injury [Unknown]

NARRATIVE: CASE EVENT DATE: 20220718
